FAERS Safety Report 11419429 (Version 1)
Quarter: 2015Q3

REPORT INFORMATION
  Report Type: Spontaneous
  Country: US (occurrence: None)
  Receive Date: 20150825
  Receipt Date: 20150825
  Transmission Date: 20151125
  Serious: Yes (Hospitalization)
  Sender: FDA-Public Use
  Company Number: None

PATIENT
  Age: 68 Year
  Sex: Male
  Weight: 75.4 kg

DRUGS (13)
  1. PROLIA [Suspect]
     Active Substance: DENOSUMAB
     Indication: BONE LOSS
     Dosage: ONE DOSE
     Route: 058
     Dates: start: 20150628
  2. CALCITRIOL. [Concomitant]
     Active Substance: CALCITRIOL
  3. CALCIUM CARBONATE + VITAMIN D [Concomitant]
  4. NIFEDIPINE. [Concomitant]
     Active Substance: NIFEDIPINE
  5. PROLIA [Suspect]
     Active Substance: DENOSUMAB
     Indication: PROSTATE CANCER
     Dosage: ONE DOSE
     Route: 058
     Dates: start: 20150628
  6. BRIMONIDINE [Concomitant]
     Active Substance: BRIMONIDINE TARTRATE
  7. NEBIVOLOL. [Concomitant]
     Active Substance: NEBIVOLOL
  8. PREDNISONE. [Concomitant]
     Active Substance: PREDNISONE
  9. DORZOLAMIDE OPTH [Concomitant]
  10. HYDRALIZINE [Concomitant]
  11. OMPERAOLE [Concomitant]
  12. CALCIUM GLUCONATE. [Concomitant]
     Active Substance: CALCIUM GLUCONATE
  13. WARFARIN [Concomitant]
     Active Substance: WARFARIN

REACTIONS (2)
  - Hypocalcaemia [None]
  - Depressed level of consciousness [None]

NARRATIVE: CASE EVENT DATE: 20150702
